FAERS Safety Report 4998523-X (Version None)
Quarter: 2006Q2

REPORT INFORMATION
  Report Type: 
  Country: None (occurrence: None)
  Receive Date: 20060508
  Receipt Date: 20060425
  Transmission Date: 20061013
  Serious: Yes (Death, Life-Threatening)
  Sender: FDA-Public Use
  Company Number: 224411

PATIENT
  Age: 75 Year
  Sex: Male

DRUGS (3)
  1. ACTIVASE [Suspect]
     Indication: ISCHAEMIC STROKE
     Dosage: 72 MG, SINGLE, INTRAVENOUS
     Route: 042
     Dates: start: 20040625, end: 20040625
  2. ASAFLOW (ASPIRIN) [Concomitant]
  3. MEDROL ACETATE [Concomitant]

REACTIONS (2)
  - BRONCHOPNEUMONIA [None]
  - GASTRIC ULCER HAEMORRHAGE [None]
